FAERS Safety Report 5311214-0 (Version None)
Quarter: 2007Q2

REPORT INFORMATION
  Report Type: 
  Country: None (occurrence: None)
  Receive Date: 20070423
  Receipt Date: 20070411
  Transmission Date: 20071010
  Serious: Yes (Hospitalization, Other)
  Sender: FDA-Public Use
  Company Number: 07042087

PATIENT
  Age: 52 Year
  Sex: Female

DRUGS (5)
  1. ETODOLAC [Suspect]
     Indication: OSTEOARTHRITIS
     Dosage: ORAL
     Route: 048
  2. NAXOPREN (NAPROXEN) [Concomitant]
  3. FLURBIPROFEN [Concomitant]
  4. DICLOFENAC (DICLOFENAC) [Concomitant]
  5. PIROXICAM [Concomitant]

REACTIONS (5)
  - BURNING SENSATION [None]
  - DERMATITIS [None]
  - DRUG ERUPTION [None]
  - PRURITUS [None]
  - SKIN DEPIGMENTATION [None]
